FAERS Safety Report 17908861 (Version 1)
Quarter: 2020Q3

REPORT INFORMATION
  Report Type: Report from Study
  Country: US (occurrence: US)
  Receive Date: 20200617
  Receipt Date: 20200617
  Transmission Date: 20201105
  Serious: Yes (Other)
  Sender: FDA-Public Use
  Company Number: US-MYLANLABS-2020M1056781

PATIENT
  Sex: Female

DRUGS (3)
  1. PF?04136309. [Suspect]
     Active Substance: PF-04136309
     Indication: DUCTAL ADENOCARCINOMA OF PANCREAS
     Dosage: 750 MILLIGRAM, BID, 28?DAYS CYCLE
     Route: 048
  2. PACLITAXEL INJECTION USP [Suspect]
     Active Substance: PACLITAXEL
     Indication: DUCTAL ADENOCARCINOMA OF PANCREAS
     Dosage: 125 MILLIGRAM/SQ. METER, OVER 30?40 MIN ON DAYS 1, 8 AND 15 OF EACH CYCLE IN A 28?DAY ..
     Route: 042
  3. GEMCITABINE. [Suspect]
     Active Substance: GEMCITABINE
     Indication: DUCTAL ADENOCARCINOMA OF PANCREAS
     Dosage: 1000 MILLIGRAM/SQ. METER, OVER 30?40 MIN ON DAYS 1, 8 AND 15 OF EACH CYCLE IN A 28?DAY ..
     Route: 042

REACTIONS (1)
  - Cognitive disorder [Recovered/Resolved]
